FAERS Safety Report 21443829 (Version 1)
Quarter: 2022Q4

REPORT INFORMATION
  Report Type: Spontaneous
  Country: US (occurrence: US)
  Receive Date: 20221012
  Receipt Date: 20221012
  Transmission Date: 20230113
  Serious: Yes (Other)
  Sender: FDA-Public Use
  Company Number: US-CADILA HEALTHCARE LIMITED-US-ZYDUS-083422

PATIENT

DRUGS (2)
  1. SIROLIMUS [Suspect]
     Active Substance: SIROLIMUS
     Indication: Sebaceous naevus
     Dosage: 1 PERCENT, BID
     Route: 061
  2. SIROLIMUS [Suspect]
     Active Substance: SIROLIMUS
     Indication: Epidermal naevus

REACTIONS (3)
  - Skin haemorrhage [Unknown]
  - Skin fissures [Unknown]
  - Pruritus [Unknown]
